FAERS Safety Report 13276587 (Version 3)
Quarter: 2017Q2

REPORT INFORMATION
  Report Type: Report from Study
  Country: US (occurrence: US)
  Receive Date: 20170228
  Receipt Date: 20170502
  Transmission Date: 20170830
  Serious: Yes (Other)
  Sender: FDA-Public Use
  Company Number: US-PFIZER INC-2017018293

PATIENT
  Age: 68 Year
  Sex: Female

DRUGS (4)
  1. IBRANCE [Suspect]
     Active Substance: PALBOCICLIB
     Dosage: 100 MG, CYCLIC (DAILY: 3 WEEKS ON/1 WEEK OFF)
     Route: 048
     Dates: start: 20170320
  2. IBRANCE [Suspect]
     Active Substance: PALBOCICLIB
     Dosage: UNK UNK, CYCLIC(75) (DAILY, 3 WEEK ON/1 WEEK OFF)
     Route: 048
     Dates: start: 20170423
  3. IBRANCE [Suspect]
     Active Substance: PALBOCICLIB
     Indication: BREAST CANCER
     Dosage: 125 MG, CYCLIC (DAILY, 3 WEEKS ON/1 WEEK OFF)
     Route: 048
     Dates: start: 20170109, end: 20170216
  4. IBRANCE [Suspect]
     Active Substance: PALBOCICLIB
     Dosage: UNK UNK, CYCLIC(100) (DAILY, 3 WEEK ON/1 WEEK OFF)
     Route: 048
     Dates: start: 20170320, end: 20170403

REACTIONS (16)
  - Nausea [Unknown]
  - Hair growth abnormal [Unknown]
  - Pain in extremity [Unknown]
  - Bone marrow failure [Unknown]
  - Diarrhoea [Unknown]
  - Dry eye [Unknown]
  - Condition aggravated [Unknown]
  - Fall [Unknown]
  - Stomatitis [Recovered/Resolved]
  - Dry mouth [Unknown]
  - Anxiety [Unknown]
  - Hot flush [Unknown]
  - Depression [Unknown]
  - Fatigue [Unknown]
  - Epistaxis [Recovered/Resolved]
  - Nail growth abnormal [Unknown]
